FAERS Safety Report 23700862 (Version 1)
Quarter: 2024Q2

REPORT INFORMATION
  Report Type: Spontaneous
  Country: US (occurrence: US)
  Receive Date: 20240403
  Receipt Date: 20240403
  Transmission Date: 20240715
  Serious: No
  Sender: FDA-Public Use
  Company Number: US-TAKEDA-2024TUS031008

PATIENT
  Sex: Male
  Weight: 91 kg

DRUGS (1)
  1. DEXILANT [Suspect]
     Active Substance: DEXLANSOPRAZOLE
     Indication: Precancerous lesion of digestive tract
     Dosage: 60 MILLIGRAM, QD
     Route: 065

REACTIONS (3)
  - Gastrointestinal disorder [Unknown]
  - Product use in unapproved indication [Unknown]
  - Product use issue [Unknown]
